FAERS Safety Report 16809294 (Version 1)
Quarter: 2019Q3

REPORT INFORMATION
  Report Type: Spontaneous
  Country: US (occurrence: US)
  Receive Date: 20190916
  Receipt Date: 20190916
  Transmission Date: 20191005
  Serious: No
  Sender: FDA-Public Use
  Company Number: US-HTU-2019US018815

PATIENT
  Sex: Male

DRUGS (1)
  1. VALCHLOR [Suspect]
     Active Substance: MECHLORETHAMINE
     Indication: CUTANEOUS T-CELL LYMPHOMA
     Dosage: THIN FILM, ONCE DAILY
     Route: 061
     Dates: start: 20190225

REACTIONS (14)
  - Skin discolouration [Unknown]
  - Pain of skin [Unknown]
  - Skin hyperpigmentation [Unknown]
  - Pruritus [Unknown]
  - Blister [Not Recovered/Not Resolved]
  - Dry skin [Unknown]
  - Skin erosion [Not Recovered/Not Resolved]
  - Skin burning sensation [Unknown]
  - Skin exfoliation [Unknown]
  - Skin discolouration [Not Recovered/Not Resolved]
  - Skin swelling [Not Recovered/Not Resolved]
  - Erythema [Unknown]
  - Skin weeping [Not Recovered/Not Resolved]
  - Condition aggravated [Not Recovered/Not Resolved]
